FAERS Safety Report 4305254-8 (Version None)
Quarter: 2004Q1

REPORT INFORMATION
  Report Type: 
  Country: None (occurrence: None)
  Receive Date: 20040226
  Receipt Date: 20031217
  Transmission Date: 20041129
  Serious: No
  Sender: FDA-Public Use
  Company Number: US-BRISTOL-MYERS SQUIBB COMPANY-12463162

PATIENT
  Sex: Male
  Weight: 89 kg

DRUGS (2)
  1. DEFINITY [Suspect]
     Indication: CORONARY ARTERY DISEASE
     Dosage: DOSAGE: 2CC AT REST AND 3CC POST
     Dates: start: 20031203
  2. DEFINITY [Suspect]
     Indication: STENT PLACEMENT
     Dosage: DOSAGE: 2CC AT REST AND 3CC POST
     Dates: start: 20031203

REACTIONS (1)
  - URTICARIA [None]
